FAERS Safety Report 23539257 (Version 1)
Quarter: 2024Q1

REPORT INFORMATION
  Report Type: Spontaneous
  Country: US (occurrence: US)
  Receive Date: 20240219
  Receipt Date: 20240219
  Transmission Date: 20240410
  Serious: Yes (Other)
  Sender: FDA-Public Use
  Company Number: US-BAYER-2024A025470

PATIENT
  Age: 91 Year
  Sex: Male

DRUGS (1)
  1. ALKA-SELTZER [Suspect]
     Active Substance: ANHYDROUS CITRIC ACID\ASPIRIN\SODIUM BICARBONATE
     Dosage: UNK

REACTIONS (4)
  - Choking [None]
  - Dyspnoea [Recovered/Resolved]
  - Rib fracture [None]
  - Epistaxis [None]

NARRATIVE: CASE EVENT DATE: 20231201
